FAERS Safety Report 24312332 (Version 1)
Quarter: 2024Q3

REPORT INFORMATION
  Report Type: Spontaneous
  Country: US (occurrence: None)
  Receive Date: 20240911
  Receipt Date: 20240911
  Transmission Date: 20241017
  Serious: No
  Sender: Public
  Company Number: None

PATIENT
  Age: 23 Year
  Sex: Male
  Weight: 132.75 kg

DRUGS (12)
  1. KROGER DAYTIME AND NIGHTTIME COLD AND FLU SOFTGEL [Suspect]
     Active Substance: ACETAMINOPHEN\DEXTROMETHORPHAN HYDROBROMIDE\DOXYLAMINE SUCCINATE\PHENYLEPHRINE HYDROCHLORIDE
     Indication: Influenza like illness
     Dosage: OTHER QUANTITY : 2 CAPSULE(S);?FREQUENCY : AT BEDTIME;?
     Route: 048
     Dates: start: 20240910, end: 20240911
  2. ESTRADIOL VALERATE [Concomitant]
     Active Substance: ESTRADIOL VALERATE
  3. SPIRONOLACTONE [Concomitant]
  4. FINASTERIDE [Concomitant]
     Active Substance: FINASTERIDE
  5. WELLBUTRIN [Concomitant]
  6. LAMICTAL [Concomitant]
  7. METOPROLOL [Concomitant]
     Active Substance: METOPROLOL
  8. DILTIAZEM HYDROCHLORIDE [Concomitant]
     Active Substance: DILTIAZEM HYDROCHLORIDE
  9. TRELEGY ELLIPTA [Concomitant]
     Active Substance: FLUTICASONE FUROATE\UMECLIDINIUM BROMIDE\VILANTEROL TRIFENATATE
  10. progresterone [Concomitant]
  11. DEVICE [Concomitant]
     Active Substance: DEVICE
  12. Daily multivitamin with iron [Concomitant]

REACTIONS (1)
  - Somnambulism [None]

NARRATIVE: CASE EVENT DATE: 20240911
